FAERS Safety Report 6262802-9 (Version None)
Quarter: 2009Q3

REPORT INFORMATION
  Report Type: 
  Country: None (occurrence: None)
  Receive Date: 20090709
  Receipt Date: 20090630
  Transmission Date: 20100115
  Serious: Yes (Hospitalization, Disabling)
  Sender: FDA-Public Use
  Company Number: US-MERCK-0907USA00193

PATIENT
  Age: 69 Year
  Sex: Female

DRUGS (6)
  1. ISENTRESS [Suspect]
     Indication: HIV INFECTION
     Route: 048
     Dates: start: 20081001
  2. FLUCONAZOLE [Concomitant]
     Route: 065
  3. PRAVACHOL [Concomitant]
     Route: 065
  4. ZOFRAN [Concomitant]
     Route: 065
  5. LAMIVUDINE [Concomitant]
     Route: 065
     Dates: start: 20081001
  6. TENOFOVIR [Concomitant]
     Route: 065
     Dates: start: 20081001

REACTIONS (6)
  - BREAST MASS [None]
  - IMMUNE RECONSTITUTION SYNDROME [None]
  - MYOCARDIAL INFARCTION [None]
  - NAUSEA [None]
  - NECK MASS [None]
  - VOMITING [None]
